FAERS Safety Report 6249717-7 (Version None)
Quarter: 2009Q2

REPORT INFORMATION
  Report Type: 
  Country: None (occurrence: None)
  Receive Date: 20090624
  Receipt Date: 20090609
  Transmission Date: 20091009
  Serious: Yes (Other)
  Sender: FDA-Public Use
  Company Number: IPS_01694_2009

PATIENT
  Sex: Female

DRUGS (1)
  1. APO-GO (APO-GO - APOMORPHINE HYDROCHLORIDE) (NOT SPECIFIED) [Suspect]
     Indication: PARKINSON'S DISEASE
     Dosage: SEE IMAGE
     Route: 058
     Dates: start: 20071201

REACTIONS (2)
  - LIVER DISORDER [None]
  - PANCREATIC CARCINOMA [None]
